FAERS Safety Report 26146339 (Version 2)
Quarter: 2025Q4

REPORT INFORMATION
  Report Type: Report from Study
  Country: US (occurrence: US)
  Receive Date: 20251211
  Receipt Date: 20251231
  Transmission Date: 20260117
  Serious: No
  Sender: PFIZER
  Company Number: US-PFIZER INC-202500237186

PATIENT
  Age: 75 Year
  Sex: Female
  Weight: 56.689 kg

DRUGS (1)
  1. SOMAVERT [Suspect]
     Active Substance: PEGVISOMANT
     Indication: Acromegaly
     Dosage: 15 MG, DAILY
     Route: 058

REACTIONS (2)
  - Fluid retention [Unknown]
  - Injection site swelling [Unknown]
